FAERS Safety Report 9693125 (Version 1)
Quarter: 2013Q4

REPORT INFORMATION
  Report Type: Spontaneous
  Country: US (occurrence: US)
  Receive Date: 20131118
  Receipt Date: 20131118
  Transmission Date: 20140711
  Serious: Yes (Other)
  Sender: FDA-Public Use
  Company Number: US-009507513-1311USA005195

PATIENT
  Sex: Female

DRUGS (2)
  1. NUVARING [Suspect]
     Indication: CONTRACEPTION
     Dosage: UNK
     Route: 067
     Dates: start: 200605, end: 200609
  2. NUVARING [Suspect]
     Dosage: UNK
     Route: 067
     Dates: start: 20070512, end: 20111221

REACTIONS (2)
  - Abortion induced [Unknown]
  - Maternal exposure before pregnancy [Unknown]
